FAERS Safety Report 25515635 (Version 2)
Quarter: 2025Q3

REPORT INFORMATION
  Report Type: Spontaneous
  Country: US (occurrence: US)
  Receive Date: 20250704
  Receipt Date: 20250805
  Transmission Date: 20251020
  Serious: No
  Sender: BOEHRINGER INGELHEIM
  Company Number: US-Komodo Health-a23aa000008YL3pAAG

PATIENT
  Sex: Female

DRUGS (2)
  1. COMBIVENT RESPIMAT [Suspect]
     Active Substance: ALBUTEROL SULFATE\IPRATROPIUM BROMIDE
     Indication: Asthma
     Dosage: 1 PUFF
     Dates: start: 202501
  2. FLUTICASONE PROPIONATE HFA [Concomitant]
     Active Substance: FLUTICASONE PROPIONATE
     Indication: Product used for unknown indication
     Dosage: 1 PUFF IN THE MORNING AND 1 PUFF AT NIGHT
     Dates: start: 2025

REACTIONS (6)
  - Off label use [Unknown]
  - Fall [Recovered/Resolved]
  - Joint injury [Unknown]
  - Limb injury [Unknown]
  - Asthma [Unknown]
  - Product delivery mechanism issue [Unknown]

NARRATIVE: CASE EVENT DATE: 20250101
